FAERS Safety Report 6613667-4 (Version None)
Quarter: 2010Q1

REPORT INFORMATION
  Report Type: 
  Country: None (occurrence: None)
  Receive Date: 20100304
  Receipt Date: 20100226
  Transmission Date: 20100710
  Serious: Yes (Other)
  Sender: FDA-Public Use
  Company Number: US-ELI_LILLY_AND_COMPANY-US201003000456

PATIENT
  Sex: Female

DRUGS (2)
  1. HUMULIN 70/30 [Suspect]
     Indication: DIABETES MELLITUS
     Dosage: UNK, 2/D
  2. HUMULIN 70/30 [Suspect]
     Dosage: UNK, 2/D

REACTIONS (6)
  - CATARACT [None]
  - DIABETIC NEUROPATHY [None]
  - EYE HAEMORRHAGE [None]
  - EYE LASER SURGERY [None]
  - VESSEL PERFORATION [None]
  - VISUAL ACUITY REDUCED [None]
